FAERS Safety Report 22663764 (Version 5)
Quarter: 2024Q2

REPORT INFORMATION
  Report Type: Spontaneous
  Country: FR (occurrence: FR)
  Receive Date: 20230703
  Receipt Date: 20240429
  Transmission Date: 20240715
  Serious: Yes (Hospitalization, Other)
  Sender: FDA-Public Use
  Company Number: None

PATIENT
  Age: 59 Year
  Sex: Female

DRUGS (17)
  1. SEVOFLURANE [Suspect]
     Active Substance: SEVOFLURANE
     Indication: Anaesthesia
     Route: 042
     Dates: start: 20230522, end: 20230522
  2. ATRACURIUM [Suspect]
     Active Substance: ATRACURIUM
     Indication: Anaesthesia
     Dosage: POSOLOGIE NON COMMUNIQU?E
     Route: 042
     Dates: start: 20230522, end: 20230522
  3. PERFALGAN [Suspect]
     Active Substance: ACETAMINOPHEN
     Indication: Antibiotic prophylaxis
     Dosage: 10 MG/ML, SOLUTION POUR PERFUSION
     Route: 042
     Dates: start: 20230522, end: 20230525
  4. ROPIVACAINE [Suspect]
     Active Substance: ROPIVACAINE
     Indication: Anaesthesia
     Route: 042
     Dates: start: 20230522, end: 20230522
  5. PHLOROGLUCINOL [Suspect]
     Active Substance: PHLOROGLUCINOL
     Indication: Abdominal pain
     Dosage: POSOLOGIE NON COMMUNIQU?E
     Route: 042
     Dates: start: 20230523, end: 20230525
  6. NICARDIPINE HYDROCHLORIDE [Suspect]
     Active Substance: NICARDIPINE HYDROCHLORIDE
     Indication: Hypertension
     Dosage: POSOLOGIE NON COMMUNIQU?E
     Route: 042
     Dates: start: 20230523, end: 20230524
  7. PROPOFOL [Suspect]
     Active Substance: PROPOFOL
     Indication: Anaesthesia
     Dosage: POSOLOGIE NON COMMUNIQU?E
     Route: 042
     Dates: start: 20230522, end: 20230522
  8. CEFAZOLIN SODIUM [Suspect]
     Active Substance: CEFAZOLIN SODIUM
     Indication: Antibiotic prophylaxis
     Dosage: POSOLOGIE NON COMMUNIQU?E
     Route: 042
     Dates: start: 20230522, end: 20230522
  9. ACUPAN [Suspect]
     Active Substance: NEFOPAM HYDROCHLORIDE
     Indication: Pain prophylaxis
     Dosage: SOLUTION INJECTABLE
     Route: 042
     Dates: start: 20230522, end: 20230523
  10. KETAMINE [Suspect]
     Active Substance: KETAMINE
     Indication: Anaesthesia
     Dosage: POSOLOGIE NON COMMUNIQU?E
     Route: 042
     Dates: start: 20230522, end: 20230522
  11. LOVENOX [Suspect]
     Active Substance: ENOXAPARIN SODIUM
     Indication: Thrombosis prophylaxis
     Dosage: POSOLOGIE NON COMMUNIQU?E
     Route: 058
     Dates: start: 20230522, end: 20230601
  12. ONDANSETRON [Suspect]
     Active Substance: ONDANSETRON
     Indication: Antiemetic supportive care
     Dosage: POSOLOGIE NON COMMUNIQU?E
     Route: 042
     Dates: start: 20230523, end: 20230524
  13. PANTOPRAZOLE [Suspect]
     Active Substance: PANTOPRAZOLE
     Indication: Gastritis prophylaxis
     Route: 042
     Dates: start: 20230522, end: 20230530
  14. SUFENTANIL [Suspect]
     Active Substance: SUFENTANIL
     Indication: Anaesthesia
     Dosage: POSOLOGIE NON COMMUNIQU?E
     Route: 042
     Dates: start: 20230522, end: 20230522
  15. TRAMADOL HYDROCHLORIDE [Suspect]
     Active Substance: TRAMADOL HYDROCHLORIDE
     Indication: Pain prophylaxis
     Dosage: OPALGIC 100 MG/2 ML, SOLUTION FOR INJECTION IN AMPOULES
     Route: 042
     Dates: start: 20230522, end: 20230522
  16. ULTRAVIST [Suspect]
     Active Substance: IOPROMIDE
     Indication: Imaging procedure
     Dosage: 370 (370 MG /ML), SOLUTION INJECTABLE
     Route: 042
     Dates: start: 20230524, end: 20230524
  17. DEXAMETHASONE [Suspect]
     Active Substance: DEXAMETHASONE
     Indication: Prophylaxis of nausea and vomiting
     Route: 042
     Dates: start: 20230522, end: 20230522

REACTIONS (1)
  - Acute generalised exanthematous pustulosis [Recovered/Resolved]

NARRATIVE: CASE EVENT DATE: 20230525
